FAERS Safety Report 22625663 (Version 1)
Quarter: 2023Q2

REPORT INFORMATION
  Report Type: Spontaneous
  Country: US (occurrence: None)
  Receive Date: 20230617
  Receipt Date: 20230617
  Transmission Date: 20230722
  Serious: Yes (Hospitalization)
  Sender: FDA-Public Use
  Company Number: None

PATIENT
  Age: 68 Year
  Sex: Female

DRUGS (1)
  1. AMBRISENTAN [Suspect]
     Active Substance: AMBRISENTAN
     Indication: Pulmonary arterial hypertension
     Dosage: 10MG DAILY ORAL
     Route: 048
     Dates: start: 202109

REACTIONS (7)
  - Fluid retention [None]
  - Productive cough [None]
  - Joint swelling [None]
  - Chest discomfort [None]
  - Tremor [None]
  - Pleural effusion [None]
  - Therapy interrupted [None]

NARRATIVE: CASE EVENT DATE: 20230610
